FAERS Safety Report 17035619 (Version 2)
Quarter: 2019Q4

REPORT INFORMATION
  Report Type: Report from Study
  Country: CO (occurrence: CO)
  Receive Date: 20191115
  Receipt Date: 20191120
  Transmission Date: 20200122
  Serious: Yes (Other)
  Sender: FDA-Public Use
  Company Number: CO-ASTRAZENECA-2019SF59959

PATIENT
  Age: 20180 Day
  Sex: Female

DRUGS (1)
  1. FASENRA [Suspect]
     Active Substance: BENRALIZUMAB
     Indication: ASTHMA
     Route: 058
     Dates: start: 20190717

REACTIONS (2)
  - Therapy non-responder [Recovering/Resolving]
  - Asthmatic crisis [Not Recovered/Not Resolved]

NARRATIVE: CASE EVENT DATE: 20191101
